FAERS Safety Report 15586685 (Version 1)
Quarter: 2018Q4

REPORT INFORMATION
  Report Type: Spontaneous
  Country: US (occurrence: US)
  Receive Date: 20181105
  Receipt Date: 20181105
  Transmission Date: 20190205
  Serious: Yes (Disabling, Other)
  Sender: FDA-Public Use
  Company Number: None

PATIENT
  Age: 44 Year
  Sex: Male
  Weight: 78.75 kg

DRUGS (2)
  1. LISINOPRIL. [Suspect]
     Active Substance: LISINOPRIL
  2. LISINOPRIL 10 MG TABLETS [Suspect]
     Active Substance: LISINOPRIL
     Indication: HYPERTENSION
     Dosage: ?          QUANTITY:60 TABLET(S);?
     Route: 048
     Dates: start: 20180822, end: 20181031

REACTIONS (11)
  - Chest pain [None]
  - Victim of crime [None]
  - Vision blurred [None]
  - Asthenia [None]
  - Oropharyngeal pain [None]
  - Cough [None]
  - Fatigue [None]
  - Insomnia [None]
  - Headache [None]
  - Sneezing [None]
  - Weight decreased [None]

NARRATIVE: CASE EVENT DATE: 20181007
